FAERS Safety Report 6680371-6 (Version None)
Quarter: 2010Q2

REPORT INFORMATION
  Report Type: 
  Country: None (occurrence: None)
  Receive Date: 20100412
  Receipt Date: 20100310
  Transmission Date: 20101027
  Serious: Yes (Hospitalization, Other)
  Sender: FDA-Public Use
  Company Number: 009902

PATIENT
  Sex: Female

DRUGS (10)
  1. KEPPRA [Suspect]
     Indication: MULTIPLE MYELOMA
     Dosage: 500 MG BID ORAL
     Route: 048
     Dates: end: 20100114
  2. THALOMID [Suspect]
     Indication: MULTIPLE MYELOMA
     Dosage: 50 MG QD ORAL
     Route: 048
     Dates: start: 20091215
  3. AMLODIPINE [Concomitant]
  4. HYDROCHLOROTHIAZIDE [Concomitant]
  5. DILAUDID [Concomitant]
  6. LISINOPRIL [Concomitant]
  7. MOM [Concomitant]
  8. INSULIN [Concomitant]
  9. NEUPOGEN [Concomitant]
  10. PREDNISONE [Concomitant]

REACTIONS (4)
  - ANAEMIA [None]
  - BONE MARROW FAILURE [None]
  - HAEMORRHAGE [None]
  - PLATELET COUNT DECREASED [None]
